FAERS Safety Report 9688637 (Version 1)
Quarter: 2013Q4

REPORT INFORMATION
  Report Type: Spontaneous
  Country: US (occurrence: US)
  Receive Date: 20131114
  Receipt Date: 20131114
  Transmission Date: 20140711
  Serious: Yes (Other)
  Sender: FDA-Public Use
  Company Number: US-ASTRAZENECA-2013SE82530

PATIENT
  Age: 82 Year
  Sex: Female
  Weight: 68 kg

DRUGS (13)
  1. BRILINTA [Suspect]
     Route: 048
     Dates: end: 20131030
  2. ASPIRIN [Concomitant]
  3. HCTZ [Concomitant]
  4. LOSARTAN POTASSIUM [Concomitant]
  5. ISOSORBIDE [Concomitant]
  6. METOPROLOL [Concomitant]
  7. TAMAZEPAM [Concomitant]
  8. LORAZEPAM [Concomitant]
  9. FLOVENT [Concomitant]
  10. HYDROCODONE [Concomitant]
  11. PRO AIR [Concomitant]
  12. EFFIENT [Concomitant]
  13. NITROLINGUAL SPRAY [Concomitant]
     Route: 060

REACTIONS (2)
  - Dysphagia [Not Recovered/Not Resolved]
  - Swollen tongue [Recovering/Resolving]
